FAERS Safety Report 17658902 (Version 1)
Quarter: 2020Q2

REPORT INFORMATION
  Report Type: Other
  Country: DE (occurrence: DE)
  Receive Date: 20200413
  Receipt Date: 20200413
  Transmission Date: 20200713
  Serious: Yes (Life-Threatening, Hospitalization)
  Sender: FDA-Public Use
  Company Number: DE-CELLTRION INC.-2020DE021402

PATIENT

DRUGS (2)
  1. HERZUMA [Suspect]
     Active Substance: TRASTUZUMAB-PKRB
     Indication: BREAST CANCER FEMALE
     Dosage: UNK
     Route: 042
     Dates: start: 20200305
  2. PERJETA [Concomitant]
     Active Substance: PERTUZUMAB
     Dosage: 840MG
     Dates: start: 20200305

REACTIONS (6)
  - Respiratory failure [Unknown]
  - Acute pulmonary oedema [Unknown]
  - Respiratory arrest [Unknown]
  - Infusion related reaction [Unknown]
  - Dyspnoea [Unknown]
  - Bronchospasm [Unknown]

NARRATIVE: CASE EVENT DATE: 20200305
